FAERS Safety Report 12690171 (Version 2)
Quarter: 2016Q3

REPORT INFORMATION
  Report Type: Spontaneous
  Country: IT (occurrence: IT)
  Receive Date: 20160826
  Receipt Date: 20160831
  Transmission Date: 20161109
  Serious: Yes (Other)
  Sender: FDA-Public Use
  Company Number: IT-PFIZER INC-2016393093

PATIENT
  Age: 32 Year
  Sex: Female

DRUGS (4)
  1. ADRIAMYCIN [Concomitant]
     Active Substance: DOXORUBICIN HYDROCHLORIDE
     Indication: OSTEOSARCOMA
     Dosage: UNK
     Dates: start: 198612
  2. CYCLOPHOSPHAMIDE. [Concomitant]
     Active Substance: CYCLOPHOSPHAMIDE
     Indication: OSTEOSARCOMA
     Dosage: UNK
     Dates: start: 198612
  3. VINCRISTINE SULFATE. [Suspect]
     Active Substance: VINCRISTINE SULFATE
     Indication: OSTEOSARCOMA
     Dosage: 1.5 MG, CYCLIC, 1ST AND 2ND DAYS
     Dates: start: 198612
  4. DELTACORTENE [Concomitant]
     Active Substance: PREDNISONE
     Dosage: 100 MG, CYCLIC, 5 DAYS
     Dates: start: 198612

REACTIONS (1)
  - Osteonecrosis [Unknown]
